FAERS Safety Report 11481722 (Version 6)
Quarter: 2015Q4

REPORT INFORMATION
  Report Type: Report from Study
  Country: CA (occurrence: CA)
  Receive Date: 20150909
  Receipt Date: 20151103
  Transmission Date: 20160304
  Serious: Yes (Death, Hospitalization, Disabling, Other)
  Sender: FDA-Public Use
  Company Number: CA-GILEAD-2015-0170793

PATIENT
  Age: 58 Year
  Sex: Male

DRUGS (11)
  1. IDELALISIB [Suspect]
     Active Substance: IDELALISIB
     Indication: NON-HODGKIN^S LYMPHOMA UNSPECIFIED HISTOLOGY INDOLENT
     Dosage: 150 MG, BID
     Route: 048
     Dates: start: 20150826, end: 20151013
  2. ALLOPURINOL. [Concomitant]
     Active Substance: ALLOPURINOL
  3. ACYCLOVIR                          /00587301/ [Concomitant]
     Active Substance: ACYCLOVIR
  4. IDELALISIB [Suspect]
     Active Substance: IDELALISIB
     Dosage: 150 MG, UNK
     Route: 048
     Dates: start: 20151021, end: 20151021
  5. PROCHLORAZINE [Concomitant]
  6. SANDOZ-VORICONAZOLE [Concomitant]
  7. SULFATRIM DF [Concomitant]
  8. OLANZAPINE. [Concomitant]
     Active Substance: OLANZAPINE
  9. ONDISSOLVE [Concomitant]
  10. VORICONAZOLE. [Concomitant]
     Active Substance: VORICONAZOLE
  11. HYDROMORPH CONTIN [Concomitant]
     Active Substance: HYDROMORPHONE

REACTIONS (12)
  - Feeding disorder [Unknown]
  - Decreased appetite [Unknown]
  - Clostridium difficile colitis [Recovered/Resolved]
  - Asthenia [Not Recovered/Not Resolved]
  - Muscular weakness [Unknown]
  - Vomiting [Unknown]
  - Drug dose omission [Unknown]
  - Death [Fatal]
  - Nausea [Unknown]
  - Malnutrition [Unknown]
  - Disease progression [Unknown]
  - Intestinal obstruction [Unknown]

NARRATIVE: CASE EVENT DATE: 201510
